FAERS Safety Report 6420078-3 (Version None)
Quarter: 2009Q4

REPORT INFORMATION
  Report Type: 
  Country: None (occurrence: None)
  Receive Date: 20091027
  Receipt Date: 20091014
  Transmission Date: 20100525
  Serious: Yes (Hospitalization)
  Sender: FDA-Public Use
  Company Number: 8053402

PATIENT
  Age: 75 Year
  Sex: Male

DRUGS (3)
  1. MUNTEL [Suspect]
     Dosage: 15 MG D PO
     Route: 048
     Dates: start: 20081215, end: 20090116
  2. ADOLONTA [Suspect]
     Indication: HERPES ZOSTER
     Dosage: 150 MG D PO
     Route: 048
     Dates: start: 20081228, end: 20090116
  3. TRYPTIZOL /00002202/ [Suspect]
     Indication: HERPES ZOSTER
     Dosage: 25 MG D PO
     Route: 048
     Dates: start: 20081228, end: 20090116

REACTIONS (2)
  - CONFUSIONAL STATE [None]
  - GAIT DISTURBANCE [None]
